FAERS Safety Report 13024844 (Version 1)
Quarter: 2016Q4

REPORT INFORMATION
  Report Type: Spontaneous
  Country: US (occurrence: US)
  Receive Date: 20161213
  Receipt Date: 20161213
  Transmission Date: 20170207
  Serious: Yes (Other)
  Sender: FDA-Public Use
  Company Number: US-ROCHE-1825729

PATIENT
  Sex: Male
  Weight: 6 kg

DRUGS (2)
  1. ACTILYSE [Suspect]
     Active Substance: ALTEPLASE
     Dosage: 0.2MG/KG IV BOLUS FOLLOWED BY 0.5MG/KG/HOUR INFUSION
     Route: 042
  2. ACTILYSE [Suspect]
     Active Substance: ALTEPLASE
     Indication: SHUNT OCCLUSION
     Dosage: 0.2MG/KG IV BOLUS FOLLOWED BY 0.5MG/KG/HOUR INFUSION
     Route: 040

REACTIONS (1)
  - Catheter site haemorrhage [Unknown]
